FAERS Safety Report 14265548 (Version 1)
Quarter: 2017Q4

REPORT INFORMATION
  Report Type: Report from Study
  Country: US (occurrence: US)
  Receive Date: 20171208
  Receipt Date: 20171208
  Transmission Date: 20180321
  Serious: Yes (Hospitalization)
  Sender: FDA-Public Use
  Company Number: US-ACTELION-A-NJ2016-143768

PATIENT
  Age: 67 Year
  Sex: Female
  Weight: 135.15 kg

DRUGS (2)
  1. ADCIRCA [Concomitant]
     Active Substance: TADALAFIL
  2. OPSUMIT [Suspect]
     Active Substance: MACITENTAN
     Indication: PULMONARY HYPERTENSION
     Dosage: 10 MG, QD
     Route: 048
     Dates: start: 20160919

REACTIONS (7)
  - Heart rate irregular [Unknown]
  - Nasal congestion [Not Recovered/Not Resolved]
  - Hearing disability [Unknown]
  - Vision blurred [Unknown]
  - Priapism [Not Recovered/Not Resolved]
  - Head discomfort [Unknown]
  - Headache [Not Recovered/Not Resolved]

NARRATIVE: CASE EVENT DATE: 20161020
